FAERS Safety Report 7554735-2 (Version None)
Quarter: 2011Q2

REPORT INFORMATION
  Report Type: 
  Country: None (occurrence: None)
  Receive Date: 20110617
  Receipt Date: 20110614
  Transmission Date: 20111010
  Serious: Yes (Other)
  Sender: FDA-Public Use
  Company Number: GXKR2011DE01742

PATIENT
  Sex: Female
  Weight: 60 kg

DRUGS (11)
  1. METHOTREXATE [Suspect]
     Dosage: 22.5 MG, QW
  2. IBUPROFEN [Concomitant]
     Indication: PAIN IN EXTREMITY
     Dates: start: 20100101
  3. METHOTREXATE [Suspect]
     Dosage: 15 MG, QW
     Route: 048
     Dates: start: 20090101
  4. ENALAPRIL MALEATE [Concomitant]
     Indication: HYPERTENSION
     Dosage: 10 MG, TID
     Route: 048
     Dates: start: 19990101
  5. ESTRADIOL W/NORETHISTERONE ACETATE [Concomitant]
     Dosage: 1 DF, QD
  6. METOPROLOL TARTRATE [Concomitant]
     Indication: HYPERTENSION
     Dosage: 23.75 MG, QD
     Route: 048
  7. METHOTREXATE [Suspect]
     Indication: RHEUMATOID ARTHRITIS
     Dosage: 10 MG, QW
     Dates: start: 20040101
  8. PREDNISOLONE [Suspect]
     Indication: RHEUMATOID ARTHRITIS
     Dosage: UP TO 10 MG
     Route: 048
  9. LEVOTHYROXINE SODIUM [Concomitant]
     Indication: HYPOTHYROIDISM
     Dosage: 125 UG, QD
     Route: 048
     Dates: start: 20040101
  10. FOLIC ACID [Concomitant]
     Dosage: 10 MG, QW
  11. AMLODIPINE [Concomitant]

REACTIONS (6)
  - DIZZINESS [None]
  - SYNCOPE [None]
  - GRIMACING [None]
  - HAEMATOMA [None]
  - MUSCLE SPASMS [None]
  - MYALGIA [None]
